APPROVED DRUG PRODUCT: AKTIPAK
Active Ingredient: BENZOYL PEROXIDE; ERYTHROMYCIN
Strength: 5%;3%
Dosage Form/Route: GEL;TOPICAL
Application: N050769 | Product #001
Applicant: BIOFRONTERA INC
Approved: Nov 27, 2000 | RLD: Yes | RS: No | Type: DISCN